FAERS Safety Report 6915610-7 (Version None)
Quarter: 2010Q3

REPORT INFORMATION
  Report Type: 
  Country: None (occurrence: None)
  Receive Date: 20100804
  Receipt Date: 20100723
  Transmission Date: 20110219
  Serious: Yes (Hospitalization, Other)
  Sender: FDA-Public Use
  Company Number: 2010AP001457

PATIENT
  Age: 36 Year
  Sex: Female

DRUGS (9)
  1. SERTRALINE HYDROCHLORIDE [Suspect]
     Indication: ANTIDEPRESSANT THERAPY
     Dosage: 100 MG;QD, 50 MG;QD
     Dates: end: 20090201
  2. SERTRALINE HYDROCHLORIDE [Suspect]
     Indication: ANTIDEPRESSANT THERAPY
     Dosage: 100 MG;QD, 50 MG;QD
     Dates: start: 19970101
  3. DOSULEPIN (DOSULEPIN) [Suspect]
     Indication: DEPRESSION
     Dosage: 75 MG;QD, 25 MG; 25 MG
     Dates: start: 19930301, end: 19970401
  4. DOSULEPIN (DOSULEPIN) [Suspect]
     Indication: INSOMNIA
     Dosage: 75 MG;QD, 25 MG; 25 MG
     Dates: start: 19930301, end: 19970401
  5. DOSULEPIN (DOSULEPIN) [Suspect]
     Indication: DEPRESSION
     Dosage: 75 MG;QD, 25 MG; 25 MG
     Dates: start: 19930301, end: 20081201
  6. DOSULEPIN (DOSULEPIN) [Suspect]
     Indication: INSOMNIA
     Dosage: 75 MG;QD, 25 MG; 25 MG
     Dates: start: 19930301, end: 20081201
  7. DOSULEPIN (DOSULEPIN) [Suspect]
     Indication: DEPRESSION
     Dosage: 75 MG;QD, 25 MG; 25 MG
     Dates: start: 20081119, end: 20081201
  8. DOSULEPIN (DOSULEPIN) [Suspect]
     Indication: INSOMNIA
     Dosage: 75 MG;QD, 25 MG; 25 MG
     Dates: start: 20081119, end: 20081201
  9. FLUOXETINE HCL [Suspect]
     Indication: ANTIDEPRESSANT THERAPY
     Dosage: 20 MG;QD, 20 MG;QD
     Dates: start: 19970101

REACTIONS (20)
  - AGITATION [None]
  - ANXIETY [None]
  - CRYING [None]
  - DELUSION [None]
  - DRUG INTERACTION [None]
  - DRUG INTOLERANCE [None]
  - FAMILY STRESS [None]
  - FATIGUE [None]
  - FLIGHT OF IDEAS [None]
  - HALLUCINATION, OLFACTORY [None]
  - HALLUCINATIONS, MIXED [None]
  - HYPOMANIA [None]
  - INSOMNIA [None]
  - MANIA [None]
  - OFF LABEL USE [None]
  - PANIC REACTION [None]
  - PRESSURE OF SPEECH [None]
  - STRESS AT WORK [None]
  - THINKING ABNORMAL [None]
  - WEIGHT DECREASED [None]
